FAERS Safety Report 9876552 (Version 2)
Quarter: 2014Q1

REPORT INFORMATION
  Report Type: Other
  Country: US (occurrence: US)
  Receive Date: 20140206
  Receipt Date: 20140206
  Transmission Date: 20141002
  Serious: No
  Sender: FDA-Public Use
  Company Number: US-ACORDA-ACO_37870_2013

PATIENT
  Sex: Female
  Weight: 70.3 kg

DRUGS (10)
  1. AMPYRA [Suspect]
     Indication: GAIT DISTURBANCE
     Dosage: 10 MG, Q 12 HRS
     Route: 048
     Dates: start: 2013, end: 201308
  2. AMPYRA [Suspect]
     Indication: ASTHENIA
     Dosage: 10 MG, QD
     Route: 048
     Dates: start: 201308, end: 201308
  3. AMPYRA [Suspect]
     Dosage: 10 MG, QD
     Route: 065
     Dates: start: 20130905
  4. AMANTADINE [Concomitant]
     Indication: PRODUCT USED FOR UNKNOWN INDICATION
     Dosage: 100 UNK, BID
     Route: 048
  5. FISH OIL [Concomitant]
     Indication: PRODUCT USED FOR UNKNOWN INDICATION
     Dosage: UNK
  6. MULTIVITAMIN [Concomitant]
     Indication: PRODUCT USED FOR UNKNOWN INDICATION
     Dosage: UNK
  7. CALCIUM [Concomitant]
     Indication: PRODUCT USED FOR UNKNOWN INDICATION
     Dosage: UNK
  8. COPAXONE [Concomitant]
     Indication: MULTIPLE SCLEROSIS
     Dosage: 20 MG, QD
     Route: 058
  9. WELLBUTRIN [Concomitant]
     Indication: DEPRESSION
     Dosage: 100 UNK, UNK
     Dates: start: 2013
  10. ANTIDEPRESSANTS [Concomitant]
     Indication: DEPRESSION
     Dosage: UNK
     Dates: end: 2013

REACTIONS (4)
  - Hot flush [Recovered/Resolved]
  - Feeling hot [Recovered/Resolved]
  - Initial insomnia [Recovered/Resolved]
  - Inappropriate schedule of drug administration [Unknown]
